FAERS Safety Report 6201383-2 (Version None)
Quarter: 2009Q2

REPORT INFORMATION
  Report Type: 
  Country: None (occurrence: None)
  Receive Date: 20090526
  Receipt Date: 20090521
  Transmission Date: 20091009
  Serious: Yes (Life-Threatening)
  Sender: FDA-Public Use
  Company Number: PHHY2009GB19622

PATIENT
  Age: 25 Year
  Sex: Male
  Weight: 96 kg

DRUGS (5)
  1. IMATINIB MESYLATE [Suspect]
     Indication: HYPEREOSINOPHILIC SYNDROME
     Dosage: 400 MG, UNK
     Route: 048
     Dates: start: 20090101, end: 20090421
  2. IMATINIB MESYLATE [Suspect]
     Indication: CARDIAC DISORDER
  3. FRUSEMIDE [Concomitant]
     Dosage: 40 MG, UNK
     Route: 048
     Dates: start: 20080901
  4. PERINDOPRIL [Concomitant]
     Dosage: 2.5 MG, UNK
     Route: 048
     Dates: start: 20080901
  5. PREDNISOLONE [Concomitant]
     Dosage: UNK
     Route: 048
     Dates: start: 20080901

REACTIONS (2)
  - CONDITION AGGRAVATED [None]
  - HYPEREOSINOPHILIC SYNDROME [None]
